FAERS Safety Report 13576257 (Version 1)
Quarter: 2017Q2

REPORT INFORMATION
  Report Type: Spontaneous
  Country: US (occurrence: US)
  Receive Date: 20170524
  Receipt Date: 20170524
  Transmission Date: 20170830
  Serious: No
  Sender: FDA-Public Use
  Company Number: None

PATIENT
  Age: 75 Year
  Sex: Male
  Weight: 79.45 kg

DRUGS (1)
  1. BUDESONIDE INHALATION SUSPENSION [Suspect]
     Active Substance: BUDESONIDE
     Indication: LUNG DISORDER
     Dosage: 0.5MG/2ML 1 CAPSULE 1 OR 2X NEBULIZER?
     Dates: start: 20170315, end: 20170515

REACTIONS (3)
  - Product packaging confusion [None]
  - Product packaging counterfeit [None]
  - Product packaging issue [None]

NARRATIVE: CASE EVENT DATE: 20170514
